FAERS Safety Report 4855704-3 (Version None)
Quarter: 2005Q4

REPORT INFORMATION
  Report Type: 
  Country: None (occurrence: None)
  Receive Date: 20051216
  Receipt Date: 20051129
  Transmission Date: 20060501
  Serious: Yes (Hospitalization)
  Sender: FDA-Public Use
  Company Number: US-ROCHE-426812

PATIENT
  Age: 65 Year
  Sex: Female

DRUGS (15)
  1. ACCUTANE [Suspect]
     Indication: GLIOBLASTOMA MULTIFORME
     Route: 048
     Dates: start: 20051021, end: 20051110
  2. TEMODAR [Suspect]
     Indication: GLIOBLASTOMA MULTIFORME
     Route: 048
     Dates: start: 20051021, end: 20051027
  3. TEMODAR [Suspect]
     Route: 048
     Dates: start: 20051104, end: 20051110
  4. THALIDOMIDE [Suspect]
     Indication: GLIOBLASTOMA MULTIFORME
     Route: 048
     Dates: start: 20051021, end: 20051111
  5. CELEBREX [Suspect]
     Indication: GLIOBLASTOMA MULTIFORME
     Route: 048
     Dates: start: 20051021, end: 20051111
  6. COUMADIN [Concomitant]
  7. XANAX [Concomitant]
  8. MIRALAX [Concomitant]
  9. PREVACID [Concomitant]
  10. ZOFRAN [Concomitant]
  11. ZOLOFT [Concomitant]
  12. ZETIA [Concomitant]
  13. LIPITOR [Concomitant]
  14. SYNTHROID [Concomitant]
  15. TOPROL-XL [Concomitant]

REACTIONS (4)
  - APHASIA [None]
  - COGNITIVE DISORDER [None]
  - HYPERTENSION [None]
  - HYPOAESTHESIA [None]
